FAERS Safety Report 5882268-8 (Version None)
Quarter: 2008Q3

REPORT INFORMATION
  Report Type: 
  Country: None (occurrence: None)
  Receive Date: 20080912
  Receipt Date: 20080729
  Transmission Date: 20090109
  Serious: No
  Sender: FDA-Public Use
  Company Number: US-ABBOTT-08P-163-0466563-00

PATIENT
  Sex: Female
  Weight: 78.088 kg

DRUGS (4)
  1. HUMIRA [Suspect]
     Indication: PSORIASIS
     Route: 058
     Dates: start: 20080710
  2. OLMESARTAN MEDOXOMIL [Concomitant]
     Indication: HYPERTENSION
  3. PSORIATANE [Concomitant]
     Indication: PSORIASIS
  4. FEXOFENADINE [Concomitant]
     Indication: HYPERSENSITIVITY

REACTIONS (2)
  - FEELING COLD [None]
  - HYPERHIDROSIS [None]
